FAERS Safety Report 8169012-9 (Version None)
Quarter: 2012Q1

REPORT INFORMATION
  Report Type: 
  Country: None (occurrence: None)
  Receive Date: 20120227
  Receipt Date: 20120218
  Transmission Date: 20120608
  Serious: Yes (Other)
  Sender: FDA-Public Use
  Company Number: PHHY2012NL015636

PATIENT

DRUGS (1)
  1. CLOMIPRAMINE HCL [Suspect]
     Route: 064

REACTIONS (3)
  - WITHDRAWAL SYNDROME [None]
  - CYANOSIS [None]
  - FOETAL EXPOSURE DURING PREGNANCY [None]
